FAERS Safety Report 14554608 (Version 2)
Quarter: 2019Q4

REPORT INFORMATION
  Report Type: Spontaneous
  Country: DE (occurrence: DE)
  Receive Date: 20180220
  Receipt Date: 20191217
  Transmission Date: 20200122
  Serious: Yes (Congenital Anomaly)
  Sender: FDA-Public Use
  Company Number: DE-TEVA-2018-DE-856849

PATIENT
  Age: 1 Day
  Sex: Female
  Weight: 3.64 kg

DRUGS (12)
  1. EBRANTIL [Concomitant]
     Active Substance: URAPIDIL
     Indication: HYPERTENSION
     Route: 065
     Dates: start: 20160819, end: 20170529
  2. ATOZET [Concomitant]
     Active Substance: ATORVASTATIN CALCIUM\EZETIMIBE
     Indication: HYPERCHOLESTEROLAEMIA
     Dosage: 40 MG/DAY / 10 MG/D (FATHER) / PROBABLY EITHER ATOZET OR SIMVASTATIN
     Route: 065
     Dates: start: 20160819, end: 20170529
  3. ASS 100 [Concomitant]
     Active Substance: ASPIRIN
     Indication: HYPERTENSION
     Dosage: 100 MG/DAY (FATHER)
     Route: 065
     Dates: start: 20160819, end: 20170529
  4. VALSARTAN. [Concomitant]
     Active Substance: VALSARTAN
     Indication: HYPERTENSION
     Dosage: 160 MG/DAY (FATHER)
     Route: 065
     Dates: start: 20160819, end: 20170529
  5. DEKRISTOL [Concomitant]
     Active Substance: CHOLECALCIFEROL
     Indication: PRODUCT USED FOR UNKNOWN INDICATION
     Dosage: 20000 IU/DAY (EVERY SECOND WEEK) (FATHER)
     Route: 065
     Dates: start: 20160819, end: 20170529
  6. SIMVASTATIN. [Concomitant]
     Active Substance: SIMVASTATIN
     Indication: HYPERCHOLESTEROLAEMIA
     Dosage: PROBABLY EITHER SIMVASTATIN OR ATOZET
     Route: 065
  7. PARACETAMOL [Concomitant]
     Active Substance: ACETAMINOPHEN
     Indication: MIGRAINE
     Route: 064
  8. RAMILICH [Concomitant]
     Active Substance: RAMIPRIL
     Indication: HYPERTENSION
     Dosage: 10 MG/DAY (FATHER)
     Route: 065
     Dates: start: 20160819, end: 20170529
  9. AMLODIPINE [Concomitant]
     Active Substance: AMLODIPINE BESYLATE
     Indication: HYPERTENSION
     Dosage: 10 MG/DAY (FATHER)
     Route: 065
     Dates: start: 20160819, end: 20170529
  10. ESCITALOPRAM [Suspect]
     Active Substance: ESCITALOPRAM OXALATE
     Indication: DEPRESSION
     Dosage: 7.5 MILLIGRAM DAILY;
     Route: 064
     Dates: start: 20160819, end: 20170529
  11. FOLSAN [Concomitant]
     Active Substance: FOLIC ACID
     Indication: PROPHYLAXIS OF NEURAL TUBE DEFECT
     Dosage: 0.4 MG/DAY (MOTHER)
     Route: 064
     Dates: start: 20160920, end: 20170529
  12. BICANORM [Concomitant]
     Active Substance: SODIUM BICARBONATE
     Indication: GLOMERULONEPHRITIS
     Route: 065
     Dates: start: 20160819, end: 20170529

REACTIONS (4)
  - Maternal exposure during pregnancy [Unknown]
  - Ventricular septal defect [Recovered/Resolved with Sequelae]
  - Atrial septal defect [Recovered/Resolved]
  - Truncus arteriosus persistent [Recovered/Resolved with Sequelae]

NARRATIVE: CASE EVENT DATE: 20170529
